FAERS Safety Report 5445302-5 (Version None)
Quarter: 2007Q3

REPORT INFORMATION
  Report Type: 
  Country: None (occurrence: None)
  Receive Date: 20070906
  Receipt Date: 20070418
  Transmission Date: 20080115
  Serious: No
  Sender: FDA-Public Use
  Company Number: A0647839A

PATIENT
  Age: 69 Year
  Sex: Female

DRUGS (6)
  1. REQUIP [Suspect]
     Indication: PARKINSON'S DISEASE
     Route: 048
     Dates: start: 20070404
  2. CLONIDINE [Concomitant]
  3. Q-10 [Concomitant]
  4. FOLIC ACID [Concomitant]
  5. HYDROCHLOROTHIAZIDE [Concomitant]
  6. CALCIUM [Concomitant]

REACTIONS (2)
  - DRUG INEFFECTIVE [None]
  - SOMNOLENCE [None]
